FAERS Safety Report 13983321 (Version 3)
Quarter: 2017Q4

REPORT INFORMATION
  Report Type: Report from Study
  Country: FR (occurrence: FR)
  Receive Date: 20170918
  Receipt Date: 20171003
  Transmission Date: 20180321
  Serious: Yes (Hospitalization)
  Sender: FDA-Public Use
  Company Number: FR-ASTRAZENECA-2017SE92972

PATIENT
  Age: 18631 Day
  Sex: Male

DRUGS (2)
  1. DURVALUMAB. [Suspect]
     Active Substance: DURVALUMAB
     Indication: NON-SMALL CELL LUNG CANCER
     Dosage: 750 MG ON DAYS 1, 15, 29 (WEEKS 0, 2 AND 4)
     Route: 042
     Dates: start: 20170608
  2. LANSOPRAZOLE. [Concomitant]
     Active Substance: LANSOPRAZOLE
     Route: 065

REACTIONS (1)
  - Haemoptysis [Recovered/Resolved with Sequelae]

NARRATIVE: CASE EVENT DATE: 20170704
